FAERS Safety Report 4832832-X (Version None)
Quarter: 2005Q4

REPORT INFORMATION
  Report Type: 
  Country: None (occurrence: None)
  Receive Date: 20051121
  Receipt Date: 20050930
  Transmission Date: 20060501
  Serious: Yes (Hospitalization)
  Sender: FDA-Public Use
  Company Number: US-MERCK-0510USA00733

PATIENT
  Age: 76 Year
  Sex: Male

DRUGS (22)
  1. VIOXX [Suspect]
     Indication: ARTHRITIS
     Route: 048
     Dates: start: 20011117, end: 20040809
  2. ALTACE [Concomitant]
     Route: 065
  3. AMBIEN [Concomitant]
     Route: 065
  4. APAP TAB [Concomitant]
     Route: 065
  5. CODEINE [Concomitant]
     Route: 065
  6. ARICEPT [Concomitant]
     Route: 065
  7. CARISOPRODOL [Concomitant]
     Route: 065
  8. CARTIA (ASPIRIN) [Concomitant]
     Route: 065
  9. COREG [Concomitant]
     Route: 065
  10. DILTIAZEM [Concomitant]
     Route: 065
  11. DITROPAN [Concomitant]
     Route: 065
  12. FUROSEMIDE [Concomitant]
     Route: 065
  13. GLIPIZIDE [Concomitant]
     Route: 065
  14. LIPITOR [Concomitant]
     Route: 065
  15. PLAVIX [Concomitant]
     Route: 065
  16. PLETAL [Concomitant]
     Route: 065
  17. POTASSIUM CHLORIDE [Concomitant]
     Route: 065
  18. PREVACID [Concomitant]
     Route: 065
  19. PROTONIX [Concomitant]
     Route: 065
  20. SYNTHROID [Concomitant]
     Route: 065
  21. WARFARIN [Concomitant]
     Route: 065
  22. ZOLOFT [Concomitant]
     Route: 065

REACTIONS (2)
  - ISCHAEMIC STROKE [None]
  - THYROID DISORDER [None]
